FAERS Safety Report 7583026-9 (Version None)
Quarter: 2011Q2

REPORT INFORMATION
  Report Type: 
  Country: None (occurrence: None)
  Receive Date: 20110627
  Receipt Date: 20110627
  Transmission Date: 20111010
  Serious: No
  Sender: FDA-Public Use
  Company Number: None

PATIENT
  Age: 74 Year
  Sex: Female
  Weight: 72.5755 kg

DRUGS (1)
  1. CIPROFLOXACIN [Suspect]
     Indication: GASTRITIS
     Dosage: ONE TWO TIMES A DAY ONE TIME
     Dates: start: 20110114, end: 20110115

REACTIONS (5)
  - HEADACHE [None]
  - PHOTOPSIA [None]
  - SOMNOLENCE [None]
  - FEELING ABNORMAL [None]
  - PAIN IN EXTREMITY [None]
